FAERS Safety Report 5145067-0 (Version None)
Quarter: 2006Q4

REPORT INFORMATION
  Report Type: 
  Country: None (occurrence: None)
  Receive Date: 20061107
  Receipt Date: 20061026
  Transmission Date: 20070319
  Serious: Yes (Other)
  Sender: FDA-Public Use
  Company Number: US-MERCK-0611USA01366

PATIENT

DRUGS (10)
  1. PEPCID AC [Suspect]
     Route: 048
     Dates: start: 20010101
  2. NEXIUM [Suspect]
     Indication: GASTROOESOPHAGEAL REFLUX DISEASE
     Route: 065
     Dates: start: 20010101
  3. TOPROL-XL [Suspect]
     Route: 065
  4. AMBIEN [Suspect]
     Route: 065
  5. ZOCOR [Suspect]
     Route: 048
  6. LEXAPRO [Suspect]
     Route: 065
  7. DYAZIDE [Suspect]
     Route: 065
  8. IRON [Suspect]
     Route: 065
  9. CALCIUM [Suspect]
     Route: 065
  10. VITAMINS [Suspect]
     Route: 065

REACTIONS (3)
  - DRUG INTERACTION [None]
  - EXPRESSIVE LANGUAGE DISORDER [None]
  - INSOMNIA [None]
